APPROVED DRUG PRODUCT: ARISTADA INITIO KIT
Active Ingredient: ARIPIPRAZOLE LAUROXIL
Strength: 675MG/2.4ML (281.25MG/ML)
Dosage Form/Route: SUSPENSION, EXTENDED RELEASE;INTRAMUSCULAR
Application: N209830 | Product #001
Applicant: ALKERMES INC
Approved: Jun 29, 2018 | RLD: Yes | RS: Yes | Type: RX

PATENTS:
Patent 8796276 | Expires: Jun 24, 2030
Patent 10112903 | Expires: Jun 24, 2030
Patent 12251381 | Expires: Apr 6, 2039
Patent 10849894 | Expires: Aug 17, 2035
Patent 11273158 | Expires: Apr 6, 2039
Patent 11154552 | Expires: Aug 17, 2035
Patent 8431576 | Expires: Oct 26, 2030
Patent 10688091 | Expires: Aug 17, 2035
Patent 10016415 | Expires: Sep 8, 2035